FAERS Safety Report 14165122 (Version 1)
Quarter: 2017Q4

REPORT INFORMATION
  Report Type: Spontaneous
  Country: US (occurrence: None)
  Receive Date: 20171107
  Receipt Date: 20171107
  Transmission Date: 20180321
  Serious: Yes (Hospitalization, Other)
  Sender: FDA-Public Use
  Company Number: None

PATIENT
  Age: 27 Year
  Sex: Female
  Weight: 90.72 kg

DRUGS (1)
  1. LATUDA [Suspect]
     Active Substance: LURASIDONE HYDROCHLORIDE

REACTIONS (5)
  - Maternal exposure during pregnancy [None]
  - Pelvic fracture [None]
  - Complication of delivery [None]
  - Anaphylactic shock [None]
  - Foetal exposure during pregnancy [None]

NARRATIVE: CASE EVENT DATE: 20150326
